FAERS Safety Report 6550521-0 (Version None)
Quarter: 2010Q1

REPORT INFORMATION
  Report Type: 
  Country: None (occurrence: None)
  Receive Date: 20100125
  Receipt Date: 20100120
  Transmission Date: 20100710
  Serious: Yes (Life-Threatening, Hospitalization)
  Sender: FDA-Public Use
  Company Number: B0625512A

PATIENT
  Age: 91 Year
  Sex: Female
  Weight: 39 kg

DRUGS (4)
  1. ARIXTRA [Suspect]
     Indication: THROMBOSIS PROPHYLAXIS
     Dosage: 1.5MG PER DAY
     Route: 058
     Dates: start: 20091210, end: 20091219
  2. CEFAZOLIN SODIUM [Suspect]
     Indication: INFECTION PROPHYLAXIS
     Dosage: 1G TWICE PER DAY
     Route: 042
     Dates: start: 20091208, end: 20091210
  3. CRAVIT [Suspect]
     Indication: URINARY TRACT INFECTION
     Dosage: 500MG PER DAY
     Route: 048
     Dates: start: 20091220, end: 20091221
  4. UNKNOWN DRUG [Concomitant]
     Route: 048

REACTIONS (1)
  - GRANULOCYTOPENIA [None]
